FAERS Safety Report 8792941 (Version 2)
Quarter: 2012Q4

REPORT INFORMATION
  Report Type: 
  Country: US (occurrence: US)
  Receive Date: 20120918
  Receipt Date: 20121010
  Transmission Date: 20130627
  Serious: No
  Sender: FDA-Public Use
  Company Number: US-ASTRAZENECA-2012SE70434

PATIENT
  Age: 54 Year
  Sex: Female
  Weight: 61.2 kg

DRUGS (12)
  1. SYMBICORT PMDI [Suspect]
     Indication: CHRONIC OBSTRUCTIVE PULMONARY DISEASE
     Dosage: 160/4.5 MCG, TWO PUFFS DAILY
     Route: 055
     Dates: start: 2011
  2. SYMBICORT PMDI [Suspect]
     Indication: CHRONIC OBSTRUCTIVE PULMONARY DISEASE
     Dosage: 80/4.5 MCG, TWO PUFFS DAILY
     Route: 055
  3. SYMBICORT PMDI [Suspect]
     Indication: CHRONIC OBSTRUCTIVE PULMONARY DISEASE
     Dosage: 160/4.5 MCG, TWO PUFFS DAILY
     Route: 055
  4. NEXIUM [Suspect]
     Indication: GASTRIC DISORDER
     Route: 048
  5. NEXIUM [Suspect]
     Indication: OESOPHAGITIS
     Route: 048
  6. NEXIUM [Suspect]
     Indication: GASTROOESOPHAGEAL REFLUX DISEASE
     Route: 048
  7. LEVOTHYROXINE [Concomitant]
     Indication: THYROID HORMONE REPLACEMENT THERAPY
     Route: 048
  8. BISOPR/HCTZ [Concomitant]
     Indication: HYPERTENSION
     Dosage: 5/6.25 DAILY
     Route: 048
  9. VERAPAMIL [Concomitant]
     Indication: CARDIAC DISORDER
     Route: 048
  10. SPIRIVA [Concomitant]
     Indication: CHRONIC OBSTRUCTIVE PULMONARY DISEASE
     Dosage: DAILY
     Route: 055
     Dates: start: 2011
  11. ALBUTEROL/BROMIDE [Concomitant]
     Indication: CHRONIC OBSTRUCTIVE PULMONARY DISEASE
     Dosage: 2.5/0.5 BID
     Route: 055
     Dates: start: 1995
  12. PRAVASTATIN [Concomitant]
     Indication: BLOOD CHOLESTEROL ABNORMAL
     Route: 048
     Dates: start: 2010

REACTIONS (15)
  - Asthma [Unknown]
  - Dyspnoea [Unknown]
  - Gait disturbance [Unknown]
  - Bone disorder [Unknown]
  - Body height decreased [Unknown]
  - Pain in extremity [Unknown]
  - Tendonitis [Unknown]
  - Neuropathy peripheral [Unknown]
  - Oedema peripheral [Unknown]
  - Skin discolouration [Unknown]
  - Muscular weakness [Unknown]
  - Limb injury [Unknown]
  - Mental disorder [Unknown]
  - Insomnia [Not Recovered/Not Resolved]
  - Incorrect dose administered [Unknown]
